FAERS Safety Report 4366363-0 (Version None)
Quarter: 2004Q2

REPORT INFORMATION
  Report Type: 
  Country: None (occurrence: None)
  Receive Date: 20040527
  Receipt Date: 20040112
  Transmission Date: 20050107
  Serious: No
  Sender: FDA-Public Use
  Company Number: US-GLAXOSMITHKLINE-A0492566A

PATIENT
  Age: 27 Year
  Sex: Female

DRUGS (2)
  1. VENTOLIN [Suspect]
     Indication: ASTHMA
     Route: 055
  2. TYLENOL [Concomitant]

REACTIONS (2)
  - CHEST PAIN [None]
  - TACHYCARDIA [None]
